FAERS Safety Report 6121433-1 (Version None)
Quarter: 2009Q1

REPORT INFORMATION
  Report Type: 
  Country: None (occurrence: None)
  Receive Date: 20090317
  Receipt Date: 20090306
  Transmission Date: 20090719
  Serious: Yes (Other)
  Sender: FDA-Public Use
  Company Number: PHEH2008US03326

PATIENT
  Age: 80 Year
  Sex: Female

DRUGS (4)
  1. ZELNORM [Suspect]
  2. XANAX [Concomitant]
  3. ACTONEL [Concomitant]
  4. MIRALAX [Concomitant]

REACTIONS (4)
  - COLITIS ISCHAEMIC [None]
  - COLITIS ULCERATIVE [None]
  - DIARRHOEA [None]
  - MUSCLE SPASMS [None]
